FAERS Safety Report 9227124 (Version 1)
Quarter: 2013Q2

REPORT INFORMATION
  Report Type: Report from Study
  Country: CA (occurrence: CA)
  Receive Date: 20130412
  Receipt Date: 20130412
  Transmission Date: 20140414
  Serious: Yes (Other)
  Sender: FDA-Public Use
  Company Number: CA-JNJFOC-20130402982

PATIENT
  Age: 30 Year
  Sex: Female
  Weight: 74.2 kg

DRUGS (1)
  1. REMICADE [Suspect]
     Indication: HIDRADENITIS
     Route: 042
     Dates: start: 20110928

REACTIONS (2)
  - Mass [Not Recovered/Not Resolved]
  - Off label use [Unknown]
